FAERS Safety Report 7329400-7 (Version None)
Quarter: 2011Q1

REPORT INFORMATION
  Report Type: 
  Country: None (occurrence: None)
  Receive Date: 20110303
  Receipt Date: 20110224
  Transmission Date: 20110831
  Serious: Yes (Other)
  Sender: FDA-Public Use
  Company Number: FI-GENZYME-MOZO-1000474

PATIENT

DRUGS (7)
  1. GRANULOCYTE COLONY STIMULATING FACTOR [Concomitant]
     Indication: HAEMATOPOIETIC STEM CELL MOBILISATION
     Route: 065
  2. CYTARABINE [Concomitant]
     Indication: HAEMATOPOIETIC STEM CELL MOBILISATION
     Route: 065
  3. ETOPOSIDE [Concomitant]
     Indication: HAEMATOPOIETIC STEM CELL MOBILISATION
     Route: 065
  4. MOZOBIL [Suspect]
     Indication: HAEMATOPOIETIC STEM CELL MOBILISATION
     Route: 065
  5. CARMUSTINE [Concomitant]
     Indication: HAEMATOPOIETIC STEM CELL MOBILISATION
     Route: 065
  6. MELPHALAN [Concomitant]
     Indication: HAEMATOPOIETIC STEM CELL MOBILISATION
     Route: 065
  7. CHEMOTHERAPEUTICS NOS [Concomitant]
     Indication: HAEMATOPOIETIC STEM CELL MOBILISATION
     Route: 065

REACTIONS (1)
  - DELAYED ENGRAFTMENT [None]
